FAERS Safety Report 10057976 (Version 1)
Quarter: 2014Q2

REPORT INFORMATION
  Report Type: Spontaneous
  Country: IN (occurrence: None)
  Receive Date: 20140402
  Receipt Date: 20140402
  Transmission Date: 20141212
  Serious: Yes (Other)
  Sender: FDA-Public Use
  Company Number: 2014P1002800

PATIENT
  Age: 30 Year
  Sex: Male

DRUGS (2)
  1. EPINEPHRINE [Suspect]
     Indication: ARTHROPOD STING
     Dosage: X1
     Route: 030
  2. EPINEPHRINE [Suspect]
     Indication: ALLERGY TO STING
     Dosage: X1
     Route: 030

REACTIONS (1)
  - Kounis syndrome [None]
